FAERS Safety Report 9767391 (Version 1)
Quarter: 2013Q4

REPORT INFORMATION
  Report Type: Spontaneous
  Country: US (occurrence: None)
  Receive Date: 20131216
  Receipt Date: 20131216
  Transmission Date: 20140711
  Serious: Yes (Other)
  Sender: FDA-Public Use
  Company Number: None

PATIENT
  Age: 85 Year
  Sex: Male

DRUGS (1)
  1. SUTENT [Suspect]
     Indication: RENAL CANCER
     Dosage: 50 MG DAILY X4 WEEKS THEN PO
     Route: 048
     Dates: start: 201307, end: 201310

REACTIONS (6)
  - Nausea [None]
  - Vomiting [None]
  - Asthenia [None]
  - Aphagia [None]
  - Confusional state [None]
  - Dysstasia [None]
